FAERS Safety Report 7230400-6 (Version None)
Quarter: 2011Q1

REPORT INFORMATION
  Report Type: 
  Country: None (occurrence: None)
  Receive Date: 20110118
  Receipt Date: 20110105
  Transmission Date: 20110831
  Serious: Yes (Hospitalization)
  Sender: FDA-Public Use
  Company Number: ES-ELI_LILLY_AND_COMPANY-ES201101000913

PATIENT
  Sex: Female
  Weight: 40 kg

DRUGS (10)
  1. DEPRAX [Concomitant]
     Indication: DEPRESSION
     Dosage: 100 MG, DAILY (1/D)
     Route: 048
  2. SINTROM [Concomitant]
     Indication: ARRHYTHMIA
     Dosage: UNK, DAILY (1/D)
     Route: 048
  3. DOCLIS [Concomitant]
     Indication: ARRHYTHMIA
     Dosage: 120 MG, DAILY (1/D)
     Route: 048
  4. CALCIUM + VITAMIN D [Concomitant]
     Indication: OSTEOPOROSIS
     Dosage: 500 MG, 2/D
     Route: 048
  5. HYDROMORPHONE HCL [Concomitant]
     Indication: PAIN
     Dosage: 8 MG, DAILY (1/D)
     Route: 048
  6. OMEPRAZOLE [Concomitant]
     Indication: PROPHYLAXIS
     Dosage: 20 MG, DAILY (1/D)
     Route: 048
  7. METAMIZOL [Concomitant]
     Indication: PAIN
     Dosage: 575 MG, 3/D
     Route: 048
  8. AMOXICILLIN AND CLAVULANATE POTASSIUM [Concomitant]
     Indication: INFECTION
     Dosage: UNK, 3/D
     Route: 048
     Dates: end: 20101225
  9. OPENVAS [Concomitant]
     Indication: HYPERTENSION
     Dosage: 20 MG, DAILY (1/D)
     Route: 048
  10. FORTEO [Suspect]
     Indication: OSTEOPOROSIS
     Dosage: 20 UG, DAILY (1/D)
     Route: 058
     Dates: start: 20100524, end: 20101225

REACTIONS (2)
  - MALAISE [None]
  - SMALL INTESTINAL RESECTION [None]
